FAERS Safety Report 5701675-7 (Version None)
Quarter: 2008Q2

REPORT INFORMATION
  Report Type: 
  Country: None (occurrence: None)
  Receive Date: 20080409
  Receipt Date: 20080409
  Transmission Date: 20081010
  Serious: Yes (Other)
  Sender: FDA-Public Use
  Company Number: None

PATIENT
  Sex: Female
  Weight: 83.9154 kg

DRUGS (10)
  1. AVANDIA [Suspect]
     Indication: TYPE 2 DIABETES MELLITUS
     Dosage: 4 MG TWICE DAILY PO
     Route: 048
     Dates: start: 20051101, end: 20070515
  2. METFORMIN HCL [Concomitant]
  3. ZETIA [Concomitant]
  4. LIPITOR [Concomitant]
  5. PREVACID [Concomitant]
  6. MICARDIS [Concomitant]
  7. LASIX [Concomitant]
  8. SINGULAIR [Concomitant]
  9. MULTI-VITAMIN [Concomitant]
  10. CALCIUM SUPPLEMENT [Concomitant]

REACTIONS (8)
  - ABASIA [None]
  - ANOREXIA [None]
  - CARDIAC DISORDER [None]
  - CHEST PAIN [None]
  - DIASTOLIC DYSFUNCTION [None]
  - DYSPNOEA [None]
  - OEDEMA PERIPHERAL [None]
  - WEIGHT INCREASED [None]
